FAERS Safety Report 6836367-4 (Version None)
Quarter: 2010Q3

REPORT INFORMATION
  Report Type: 
  Country: None (occurrence: None)
  Receive Date: 20100712
  Receipt Date: 20100712
  Transmission Date: 20110219
  Serious: Yes (Hospitalization)
  Sender: FDA-Public Use
  Company Number: None

PATIENT
  Age: 64 Year
  Sex: Male
  Weight: 81.1939 kg

DRUGS (1)
  1. ATACAND [Suspect]
     Dosage: 4MG ONCE DAILY PO
     Route: 048
     Dates: start: 20080801

REACTIONS (2)
  - CORONARY ARTERY STENOSIS [None]
  - LEFT VENTRICULAR DYSFUNCTION [None]
